FAERS Safety Report 7116120-7 (Version None)
Quarter: 2010Q4

REPORT INFORMATION
  Report Type: 
  Country: None (occurrence: None)
  Receive Date: 20101122
  Receipt Date: 20101111
  Transmission Date: 20110411
  Serious: Yes (Other)
  Sender: FDA-Public Use
  Company Number: US-SHIRE-ALL1-2010-05952

PATIENT

DRUGS (2)
  1. LIALDA [Suspect]
     Indication: COLITIS ULCERATIVE
     Dosage: 1.2 G, 1X/DAY:QD
     Route: 048
     Dates: start: 20100601, end: 20100701
  2. SYNTHROID [Concomitant]
     Indication: FATIGUE
     Dosage: 0.75 MG, 1X/DAY:QD
     Route: 048
     Dates: start: 20090101

REACTIONS (1)
  - PANCREATIC ENZYMES INCREASED [None]
